FAERS Safety Report 20901114 (Version 1)
Quarter: 2022Q2

REPORT INFORMATION
  Report Type: Spontaneous
  Country: US (occurrence: None)
  Receive Date: 20220601
  Receipt Date: 20220601
  Transmission Date: 20220721
  Serious: Yes (Hospitalization)
  Sender: FDA-Public Use
  Company Number: None

PATIENT
  Age: 77 Year
  Sex: Male

DRUGS (1)
  1. REBIF REBIDOSE [Suspect]
     Active Substance: INTERFERON BETA-1A
     Indication: Multiple sclerosis
     Dosage: DOSE AND FREQUENCY AT TIME OF EVENT: 44MCG SQ EVERY TUESDAY, THURSDAY, SUNDAY
     Route: 058
     Dates: start: 20180626

REACTIONS (4)
  - Syncope [None]
  - Anaemia [None]
  - Gastrointestinal ulcer haemorrhage [None]
  - Intestinal mass [None]

NARRATIVE: CASE EVENT DATE: 20220529
